FAERS Safety Report 24777206 (Version 4)
Quarter: 2025Q3

REPORT INFORMATION
  Report Type: Spontaneous
  Country: US (occurrence: US)
  Receive Date: 20241226
  Receipt Date: 20250805
  Transmission Date: 20251020
  Serious: Yes (Hospitalization)
  Sender: SANOFI AVENTIS
  Company Number: US-SA-2024SA380457

PATIENT
  Age: 58 Year
  Sex: Male

DRUGS (2)
  1. DUPIXENT [Suspect]
     Active Substance: DUPILUMAB
     Indication: Eosinophilic oesophagitis
     Dosage: 300 MG, QW
     Route: 058
     Dates: end: 202409
  2. DUPIXENT [Suspect]
     Active Substance: DUPILUMAB
     Dosage: 300 MG, QW
     Route: 058

REACTIONS (13)
  - Fall [Unknown]
  - Back pain [Unknown]
  - Condition aggravated [Unknown]
  - Skin ulcer [Unknown]
  - Decreased appetite [Unknown]
  - Dysphagia [Unknown]
  - Asthma [Unknown]
  - Bronchitis [Unknown]
  - Condition aggravated [Unknown]
  - Respiratory syncytial virus infection [Unknown]
  - Rotavirus infection [Unknown]
  - Influenza [Unknown]
  - Dizziness [Unknown]

NARRATIVE: CASE EVENT DATE: 20250101
